FAERS Safety Report 19003557 (Version 1)
Quarter: 2021Q1

REPORT INFORMATION
  Report Type: Spontaneous
  Country: NL (occurrence: NL)
  Receive Date: 20210312
  Receipt Date: 20210312
  Transmission Date: 20210420
  Serious: Yes (Life-Threatening, Hospitalization)
  Sender: FDA-Public Use
  Company Number: NL-TEVA-2021-NL-1887861

PATIENT
  Sex: Male

DRUGS (7)
  1. AMOXICILLINE DISPERTABLET 750MG / BRAND NAME NOT SPECIFIED [Suspect]
     Active Substance: AMOXICILLIN
     Indication: PERIODONTITIS
     Dosage: 3 DD 1 DURING, 750 MG;  THERAPY END DATE : ASKED BUT UNKNOWN
     Dates: start: 202009
  2. PRAVASTATINE TABLET 40MG / BRAND NAME NOT SPECIFIED [Concomitant]
     Dosage: 40 MG (MILLIGRAM); THERAPY START DATE; THERAPY END DATE : ASKED BUT UNKNOWN
  3. GLIMEPIRIDE TABLET 1MG / BRAND NAME NOT SPECIFIED [Concomitant]
     Dosage: 1 MG (MILLIGRAM); THERAPY START DATE; THERAPY END DATE : ASKED BUT UNKNOWN
  4. CARBASALAATCALCIUM POEDER 100MG / ASCAL CARDIO SACHET 100MG [Concomitant]
     Dosage: 100 MG (MILLIGRAM); THERAPY START DATE; THERAPY END DATE : ASKED BUT UNKNOWN
  5. NIFEDIPINE TABLET MGA 60MG / BRAND NAME NOT SPECIFIED [Concomitant]
     Active Substance: NIFEDIPINE
     Dosage: 60 MG (MILLIGRAM); THERAPY START DATE; THERAPY END DATE : ASKED BUT UNKNOWN
  6. ENALAPRIL TABLET 20MG / BRAND NAME NOT SPECIFIED [Concomitant]
     Active Substance: ENALAPRIL
     Dosage: 20 MG (MILLIGRAM); THERAPY START DATE; THERAPY END DATE : ASKED BUT UNKNOWN
  7. METFORMINE TABLET   850MG / BRAND NAME NOT SPECIFIED [Concomitant]
     Dosage: 850 MG (MILLIGRAM); THERAPY START DATE; THERAPY END DATE : ASKED BUT UNKNOWN

REACTIONS (2)
  - Tubulointerstitial nephritis [Recovered/Resolved]
  - Acute kidney injury [Recovered/Resolved]
